FAERS Safety Report 6155722-1 (Version None)
Quarter: 2009Q2

REPORT INFORMATION
  Report Type: 
  Country: None (occurrence: None)
  Receive Date: 20090415
  Receipt Date: 20090409
  Transmission Date: 20091009
  Serious: Yes (Hospitalization)
  Sender: FDA-Public Use
  Company Number: B0565875A

PATIENT
  Sex: Female
  Weight: 16.5 kg

DRUGS (2)
  1. RELENZA [Suspect]
     Indication: INFLUENZA
     Dosage: 10MG TWICE PER DAY
     Route: 055
     Dates: start: 20090310, end: 20090310
  2. ANHIBA [Concomitant]
     Route: 054
     Dates: start: 20090309, end: 20090310

REACTIONS (8)
  - ABNORMAL BEHAVIOUR [None]
  - AGGRESSION [None]
  - COGNITIVE DISORDER [None]
  - EYE ROLLING [None]
  - LOSS OF CONSCIOUSNESS [None]
  - MUSCLE RIGIDITY [None]
  - SOMNOLENCE [None]
  - SPEECH DISORDER [None]
